FAERS Safety Report 20393556 (Version 1)
Quarter: 2022Q1

REPORT INFORMATION
  Report Type: Other
  Country: None (occurrence: GB)
  Receive Date: 20220128
  Receipt Date: 20220128
  Transmission Date: 20220424
  Serious: Yes (Other)
  Sender: FDA-Public Use
  Company Number: GB-ACIC Fine Chemicals Inc-2124413

PATIENT
  Age: 77 Year
  Sex: Female

DRUGS (1)
  1. TRANEXAMIC ACID [Suspect]
     Active Substance: TRANEXAMIC ACID
     Indication: Anaemia
     Route: 048

REACTIONS (5)
  - Ureteric injury [Unknown]
  - Ureteric obstruction [Unknown]
  - Blood urine present [Unknown]
  - Flank pain [Unknown]
  - Off label use [None]
